FAERS Safety Report 6417126-3 (Version None)
Quarter: 2009Q4

REPORT INFORMATION
  Report Type: 
  Country: None (occurrence: None)
  Receive Date: 20091027
  Receipt Date: 20091027
  Transmission Date: 20100525
  Serious: No
  Sender: FDA-Public Use
  Company Number: None

PATIENT
  Age: 62 Year
  Sex: Female

DRUGS (1)
  1. CLONIDINE [Suspect]
     Indication: HYPERTENSION
     Dosage: ONE PATCH WEEKLY TRANSDERMAL
     Route: 062
     Dates: start: 20091005, end: 20091026

REACTIONS (4)
  - APPLICATION SITE REACTION [None]
  - BLOOD PRESSURE INCREASED [None]
  - PRODUCT ADHESION ISSUE [None]
  - PRODUCT SUBSTITUTION ISSUE [None]
